FAERS Safety Report 6813776-0 (Version None)
Quarter: 2010Q3

REPORT INFORMATION
  Report Type: 
  Country: None (occurrence: None)
  Receive Date: 20100701
  Receipt Date: 20100623
  Transmission Date: 20110219
  Serious: Yes (Other)
  Sender: FDA-Public Use
  Company Number: US-AMGEN-QUU418088

PATIENT
  Sex: Male
  Weight: 128.5 kg

DRUGS (2)
  1. ENBREL [Suspect]
     Indication: PSORIATIC ARTHROPATHY
     Route: 058
     Dates: start: 20090911
  2. METHOTREXATE [Concomitant]
     Dates: start: 20090112

REACTIONS (1)
  - PROSTATE CANCER [None]
